FAERS Safety Report 9124312 (Version 1)
Quarter: 2013Q1

REPORT INFORMATION
  Report Type: Spontaneous
  Country: US (occurrence: US)
  Receive Date: 20130227
  Receipt Date: 20130227
  Transmission Date: 20140127
  Serious: No
  Sender: FDA-Public Use
  Company Number: US-PFIZER INC-2013067270

PATIENT
  Age: 67 Year
  Sex: 0

DRUGS (9)
  1. AMOXICILLIN [Suspect]
     Dosage: UNK
  2. NARDIL [Suspect]
     Dosage: UNK
  3. TETRACYCLINE HCL [Suspect]
     Dosage: UNK
  4. CLARITHROMYCIN [Suspect]
     Dosage: UNK
  5. CLINDAMYCIN [Suspect]
     Dosage: UNK
  6. CEFZIL [Suspect]
     Dosage: UNK
  7. LITHIUM [Suspect]
     Dosage: UNK
  8. PARNATE [Suspect]
     Dosage: UNK
  9. VICODIN [Suspect]
     Dosage: UNK

REACTIONS (2)
  - Rash [Unknown]
  - Drug hypersensitivity [Unknown]
